FAERS Safety Report 5944759-0 (Version None)
Quarter: 2008Q4

REPORT INFORMATION
  Report Type: 
  Country: None (occurrence: None)
  Receive Date: 20081105
  Receipt Date: 20081022
  Transmission Date: 20090506
  Serious: Yes (Hospitalization)
  Sender: FDA-Public Use
  Company Number: CIP08002182

PATIENT
  Age: 65 Year
  Sex: Female

DRUGS (5)
  1. ACTONEL [Suspect]
     Dosage: 150 MG ONCE MONTHLY, ORAL
     Route: 048
     Dates: start: 20080801
  2. CALCIUM (CALCIUM) [Concomitant]
  3. VITAMIN D [Concomitant]
  4. PLAVIX [Concomitant]
  5. ASPIRIN [Concomitant]

REACTIONS (8)
  - CONDITION AGGRAVATED [None]
  - DIPLOPIA [None]
  - EYE PAIN [None]
  - EYELID PTOSIS [None]
  - FACIAL PALSY [None]
  - LUNG NEOPLASM [None]
  - LUNG NEOPLASM MALIGNANT [None]
  - OCULAR HYPERAEMIA [None]
